FAERS Safety Report 15704143 (Version 3)
Quarter: 2019Q2

REPORT INFORMATION
  Report Type: Spontaneous
  Country: SE (occurrence: SE)
  Receive Date: 20181210
  Receipt Date: 20190621
  Transmission Date: 20190711
  Serious: Yes (Hospitalization)
  Sender: FDA-Public Use
  Company Number: PHHY2018SE125098

PATIENT
  Age: 63 Year
  Sex: Male

DRUGS (9)
  1. ORUDIS [Concomitant]
     Active Substance: KETOPROFEN
     Dosage: 1 DF, QD
     Route: 065
  2. TURMERIC [Concomitant]
     Active Substance: HERBALS\TURMERIC
     Indication: PRODUCT USED FOR UNKNOWN INDICATION
     Dosage: 2 OT, QD (1/2 TEASPOON, 2X/DAY; DURING DAY AND IN EVENING )
     Route: 065
  3. ATORVASTATIN CALCIUM. [Suspect]
     Active Substance: ATORVASTATIN CALCIUM
     Indication: THROMBOSIS
     Dosage: 20 MG, UNK
     Route: 065
  4. BAMYL [ACETYLSALICYLIC ACID] [Suspect]
     Active Substance: ASPIRIN
     Indication: PRODUCT USED FOR UNKNOWN INDICATION
     Route: 065
  5. TROMBYL [Suspect]
     Active Substance: ASPIRIN
     Dosage: 75 MG, QD
     Route: 065
     Dates: start: 20180606, end: 2018
  6. METFORMIN HYDROCHLORIDE. [Suspect]
     Active Substance: METFORMIN HYDROCHLORIDE
     Indication: DIABETES MELLITUS
     Dosage: UNK
     Route: 065
  7. TROMBYL [Suspect]
     Active Substance: ASPIRIN
     Indication: THROMBOSIS
     Dosage: UNK
     Route: 065
  8. ORUDIS [Concomitant]
     Active Substance: KETOPROFEN
     Indication: PLANTAR FASCIITIS
     Dosage: 1 ?G/L, QD
     Route: 065
  9. ASPIRIN. [Suspect]
     Active Substance: ASPIRIN
     Indication: PRODUCT USED FOR UNKNOWN INDICATION
     Route: 065

REACTIONS (13)
  - Product use in unapproved indication [Unknown]
  - Vision blurred [Recovered/Resolved]
  - Pain [Unknown]
  - Swelling [Not Recovered/Not Resolved]
  - Visual impairment [Recovered/Resolved]
  - Pain in extremity [Not Recovered/Not Resolved]
  - Impaired healing [Not Recovered/Not Resolved]
  - Inflammation [Not Recovered/Not Resolved]
  - Insomnia [Unknown]
  - Back pain [Not Recovered/Not Resolved]
  - Eye disorder [Recovered/Resolved]
  - Intentional product misuse [Unknown]
  - Neuralgia [Not Recovered/Not Resolved]

NARRATIVE: CASE EVENT DATE: 201808
